FAERS Safety Report 5085544-4 (Version None)
Quarter: 2006Q3

REPORT INFORMATION
  Report Type: 
  Country: None (occurrence: None)
  Receive Date: 20060731
  Receipt Date: 20060116
  Transmission Date: 20061208
  Serious: Yes (Hospitalization)
  Sender: FDA-Public Use
  Company Number: 200512992BWH

PATIENT
  Age: 51 Year
  Sex: Female

DRUGS (12)
  1. AVELOX [Suspect]
     Indication: BRONCHITIS
     Dosage: 400 MG, QD, ORAL
     Route: 048
  2. DIABETA [Concomitant]
  3. RANITIDINE [Concomitant]
  4. POTASSIUM CHLORIDE [Concomitant]
  5. CITALOPRAM [Concomitant]
  6. COZAAR [Concomitant]
  7. LASIX [Concomitant]
  8. FERROUS SULFATE TAB [Concomitant]
  9. SPIRIVA [Concomitant]
  10. ADVAIR DISKUS 100/50 [Concomitant]
  11. LEVAQUIN [Concomitant]
  12. CEFTIN [Concomitant]

REACTIONS (4)
  - ANAPHYLACTIC REACTION [None]
  - FLUSHING [None]
  - RESPIRATORY DISTRESS [None]
  - WHEEZING [None]
